FAERS Safety Report 7123988-7 (Version None)
Quarter: 2010Q4

REPORT INFORMATION
  Report Type: 
  Country: None (occurrence: None)
  Receive Date: 20101126
  Receipt Date: 20101123
  Transmission Date: 20110411
  Serious: Yes (Other)
  Sender: FDA-Public Use
  Company Number: US-PFIZER INC-2010130015

PATIENT
  Age: 52 Year
  Sex: Male
  Weight: 78 kg

DRUGS (8)
  1. ERAXIS [Suspect]
     Indication: ANTIFUNGAL PROPHYLAXIS
     Dosage: 200MG
     Route: 042
  2. ACICLOVIR [Concomitant]
  3. LEVOFLOXACIN [Concomitant]
  4. ACETAMINOPHEN [Concomitant]
     Dosage: 4 G
  5. CEFEPIME [Concomitant]
  6. MEROPENEM [Concomitant]
  7. VANCOMYCIN [Concomitant]
  8. ALBUTEROL [Concomitant]

REACTIONS (7)
  - CHEST DISCOMFORT [None]
  - COUGH [None]
  - CREATININE RENAL CLEARANCE ABNORMAL [None]
  - DYSPNOEA [None]
  - EJECTION FRACTION ABNORMAL [None]
  - OEDEMA [None]
  - PULMONARY OEDEMA [None]
